FAERS Safety Report 6861124-2 (Version None)
Quarter: 2010Q3

REPORT INFORMATION
  Report Type: 
  Country: None (occurrence: None)
  Receive Date: 20100720
  Receipt Date: 20100708
  Transmission Date: 20110219
  Serious: Yes (Disabling)
  Sender: FDA-Public Use
  Company Number: IE-PFIZER INC-2010058276

PATIENT
  Age: 61 Year
  Sex: Female
  Weight: 70 kg

DRUGS (3)
  1. LYRICA [Suspect]
     Indication: NEURALGIA
     Dosage: 75 MG, 2X/DAY
     Route: 048
     Dates: start: 20081201, end: 20100620
  2. LYRICA [Suspect]
     Dosage: 125 MG, DAILY
     Route: 048
  3. LYRICA [Suspect]
     Dosage: 100 MG, DAILY
     Route: 048

REACTIONS (6)
  - ANXIETY [None]
  - INSOMNIA [None]
  - IRRITABILITY [None]
  - PALPITATIONS [None]
  - RESTLESSNESS [None]
  - WITHDRAWAL SYNDROME [None]
